FAERS Safety Report 14775376 (Version 1)
Quarter: 2018Q2

REPORT INFORMATION
  Report Type: Spontaneous
  Country: CA (occurrence: CA)
  Receive Date: 20180418
  Receipt Date: 20180418
  Transmission Date: 20180711
  Serious: Yes (Death, Other)
  Sender: FDA-Public Use
  Company Number: CA-GILEAD-2018-0318645

PATIENT
  Age: 62 Year
  Sex: Male

DRUGS (1)
  1. AMBRISENTAN [Suspect]
     Active Substance: AMBRISENTAN
     Indication: PULMONARY ARTERIAL HYPERTENSION
     Dosage: 10 MG, UNK
     Route: 065
     Dates: start: 20180115

REACTIONS (11)
  - Death [Fatal]
  - Swelling face [Unknown]
  - Drug ineffective [Unknown]
  - Lip swelling [Unknown]
  - Respiration abnormal [Unknown]
  - Swelling [Unknown]
  - Rash [Unknown]
  - Onychalgia [Unknown]
  - Condition aggravated [Unknown]
  - Peripheral swelling [Unknown]
  - Ill-defined disorder [Unknown]

NARRATIVE: CASE EVENT DATE: 20180202
